FAERS Safety Report 19483530 (Version 1)
Quarter: 2021Q3

REPORT INFORMATION
  Report Type: Spontaneous
  Country: DE (occurrence: DE)
  Receive Date: 20210701
  Receipt Date: 20210701
  Transmission Date: 20211014
  Serious: Yes (Death, Life-Threatening, Other)
  Sender: FDA-Public Use
  Company Number: DE-PFIZER INC-2021739725

PATIENT
  Age: 79 Year
  Sex: Female
  Weight: 88 kg

DRUGS (5)
  1. AMIODARON [AMIODARONE HYDROCHLORIDE] [Suspect]
     Active Substance: AMIODARONE HYDROCHLORIDE
     Indication: ATRIAL FIBRILLATION
     Dosage: 450 MG IN 50 ML, 4 ML PER HOUR 08JUN2021: 15:00, 10JUN2021: 10:00
     Route: 041
     Dates: start: 20210608, end: 20210610
  2. MARCUMAR [Suspect]
     Active Substance: PHENPROCOUMON
     Indication: ANTICOAGULANT THERAPY
     Dosage: 6 MG, 1X/DAY
     Route: 048
     Dates: start: 20210605, end: 20210608
  3. MARCUMAR [Suspect]
     Active Substance: PHENPROCOUMON
     Indication: ATRIAL FIBRILLATION
  4. LINEZOLID. [Suspect]
     Active Substance: LINEZOLID
     Indication: WOUND INFECTION
     Dosage: 1200 MG, 1X/DAY
     Route: 048
     Dates: start: 20210529, end: 20210604
  5. MARCUMAR [Suspect]
     Active Substance: PHENPROCOUMON
     Indication: HEART VALVE REPLACEMENT

REACTIONS (2)
  - Acute hepatic failure [Fatal]
  - Shock [Fatal]

NARRATIVE: CASE EVENT DATE: 202106
